FAERS Safety Report 5057726-9 (Version None)
Quarter: 2006Q3

REPORT INFORMATION
  Report Type: 
  Country: None (occurrence: None)
  Receive Date: 20060721
  Receipt Date: 20060127
  Transmission Date: 20061208
  Serious: No
  Sender: FDA-Public Use
  Company Number: US-GLAXOSMITHKLINE-A0591276A

PATIENT
  Age: 55 Year
  Sex: Male

DRUGS (8)
  1. AVANDIA [Suspect]
     Dosage: 8MG PER DAY
     Route: 048
  2. AMARYL [Concomitant]
  3. METFORMIN [Concomitant]
  4. ATENOLOL [Concomitant]
  5. LIPITOR [Concomitant]
  6. COSOPT [Concomitant]
  7. ALPHAGAN [Concomitant]
  8. LUMIGAN [Concomitant]

REACTIONS (1)
  - INTRAOCULAR PRESSURE INCREASED [None]
